FAERS Safety Report 19476994 (Version 1)
Quarter: 2021Q2

REPORT INFORMATION
  Report Type: Spontaneous
  Country: US (occurrence: US)
  Receive Date: 20210629
  Receipt Date: 20210629
  Transmission Date: 20210717
  Serious: Yes (Hospitalization)
  Sender: FDA-Public Use
  Company Number: None

PATIENT
  Age: 60 Year
  Sex: Female

DRUGS (3)
  1. TADALAFIL. [Suspect]
     Active Substance: TADALAFIL
     Indication: PULMONARY HYPERTENSION
     Route: 048
     Dates: start: 20200303
  2. POTASSIUM [Concomitant]
     Active Substance: POTASSIUM
  3. INTRAROSA [Concomitant]
     Active Substance: PRASTERONE

REACTIONS (2)
  - Pneumonia [None]
  - Therapy interrupted [None]
